FAERS Safety Report 8872512 (Version 1)
Quarter: 2012Q4

REPORT INFORMATION
  Report Type: 
  Country: US (occurrence: US)
  Receive Date: 20121026
  Receipt Date: 20121026
  Transmission Date: 20130627
  Serious: No
  Sender: FDA-Public Use
  Company Number: US-AMGEN-USASP2012051270

PATIENT
  Sex: Female

DRUGS (9)
  1. ENBREL [Suspect]
     Indication: PRODUCT USED FOR UNKNOWN INDICATION
     Dosage: 50 mg, qwk
     Route: 058
  2. PREDNISONE [Concomitant]
     Dosage: 5 mg, UNK
  3. ARAVA [Concomitant]
     Dosage: 10 mg, UNK
  4. METOPROLOL [Concomitant]
     Dosage: 25 mg, UNK
  5. NEXIUM                             /01479302/ [Concomitant]
     Dosage: 20 mg, UNK
  6. VITAMIN D /00107901/ [Concomitant]
     Dosage: 5000 unit, UNK
  7. VITAMIN B COMP                     /00176001/ [Concomitant]
     Dosage: UNK
  8. MULTIVITAMIN                       /00097801/ [Concomitant]
     Dosage: UNK
  9. CALCIUM MAGNESIUM [Concomitant]
     Dosage: UNK

REACTIONS (6)
  - Injection site erythema [Unknown]
  - Injection site urticaria [Unknown]
  - Injection site discolouration [Unknown]
  - Furuncle [Unknown]
  - Vitamin D decreased [Unknown]
  - Blood oestrogen decreased [Unknown]
